FAERS Safety Report 16576605 (Version 1)
Quarter: 2019Q3

REPORT INFORMATION
  Report Type: Spontaneous
  Country: US (occurrence: US)
  Receive Date: 20190603
  Receipt Date: 20190603
  Transmission Date: 20191004
  Serious: Yes (Hospitalization)
  Sender: FDA-Public Use
  Company Number: None

PATIENT
  Age: 22 Year
  Sex: Female

DRUGS (12)
  1. LORAZEPAM. [Concomitant]
     Active Substance: LORAZEPAM
  2. PANTOPRAZOLE [Concomitant]
     Active Substance: PANTOPRAZOLE
  3. PREDNISONE. [Concomitant]
     Active Substance: PREDNISONE
  4. VITAMIN E [Concomitant]
     Active Substance: .ALPHA.-TOCOPHEROL
  5. ESCITALOPRAM [Concomitant]
     Active Substance: ESCITALOPRAM OXALATE
  6. FEROSUL [Concomitant]
  7. PULMOZYME [Concomitant]
     Active Substance: DORNASE ALFA
  8. SYMDEKO [Concomitant]
     Active Substance: IVACAFTOR\TEZACAFTOR
  9. AMIKACIN 500MG/2ML SDV [Suspect]
     Active Substance: AMIKACIN
     Indication: CYSTIC FIBROSIS
     Dosage: NEBULIZER
     Dates: start: 20190427, end: 20190511
  10. CREON [Concomitant]
     Active Substance: PANCRELIPASE AMYLASE\PANCRELIPASE LIPASE\PANCRELIPASE PROTEASE
  11. VITAMIN D [Concomitant]
     Active Substance: VITAMIN D NOS
  12. AZITHROMYCIN ANHYDROUS. [Concomitant]
     Active Substance: AZITHROMYCIN ANHYDROUS

REACTIONS (4)
  - Cough [None]
  - Infective pulmonary exacerbation of cystic fibrosis [None]
  - Pain [None]
  - Product dose omission [None]

NARRATIVE: CASE EVENT DATE: 20190427
